FAERS Safety Report 6101569-1 (Version None)
Quarter: 2009Q1

REPORT INFORMATION
  Report Type: 
  Country: None (occurrence: None)
  Receive Date: 20090227
  Receipt Date: 20090217
  Transmission Date: 20090719
  Serious: Yes (Hospitalization)
  Sender: FDA-Public Use
  Company Number: APP200900089

PATIENT
  Age: 50 Year
  Sex: Female
  Weight: 66.3159 kg

DRUGS (8)
  1. SENSORCAINE [Suspect]
     Indication: DRUG USE FOR UNKNOWN INDICATION
     Dosage: 10 MG/ML, INTRATHECAL
     Route: 037
  2. UNKNOWN STUDY DRUG [Suspect]
     Indication: COLON CANCER METASTATIC
     Dosage: 1993 MG, 1 IN 1 D, INTRAVENOUS
     Route: 042
     Dates: start: 20081030, end: 20081031
  3. FENTANYL-100 [Suspect]
     Indication: DRUG USE FOR UNKNOWN INDICATION
     Dosage: INTRATHECAL
     Route: 037
  4. LASIX [Concomitant]
  5. WELLBUTRIN SR [Concomitant]
  6. MIRALAX [Concomitant]
  7. MULTIVITAMIN [Concomitant]
  8. ADVIL (MEFENAMIC ACID) [Concomitant]

REACTIONS (7)
  - ABDOMINAL PAIN [None]
  - BACK PAIN [None]
  - BACTERAEMIA [None]
  - CONDITION AGGRAVATED [None]
  - NAUSEA [None]
  - URINARY TRACT INFECTION [None]
  - VOMITING [None]
